FAERS Safety Report 9468480 (Version 1)
Quarter: 2013Q3

REPORT INFORMATION
  Report Type: Spontaneous
  Country: US (occurrence: US)
  Receive Date: 20130821
  Receipt Date: 20130821
  Transmission Date: 20140515
  Serious: No
  Sender: FDA-Public Use
  Company Number: US-PFIZER INC-2013237893

PATIENT
  Age: 79 Year
  Sex: Male
  Weight: 87.53 kg

DRUGS (1)
  1. NITROSTAT [Suspect]
     Indication: ANGINA PECTORIS
     Dosage: 0.4 MG, AS NEEDED

REACTIONS (3)
  - Pain [Unknown]
  - Drug ineffective [Unknown]
  - Product quality issue [Unknown]
